FAERS Safety Report 7780201-5 (Version None)
Quarter: 2011Q3

REPORT INFORMATION
  Report Type: 
  Country: None (occurrence: None)
  Receive Date: 20110927
  Receipt Date: 20110927
  Transmission Date: 20111222
  Serious: Yes (Other)
  Sender: FDA-Public Use
  Company Number: None

PATIENT
  Age: 25 Year
  Sex: Female
  Weight: 56.699 kg

DRUGS (2)
  1. ZYRTEC [Suspect]
     Indication: MYCOTIC ALLERGY
     Dosage: 10 MG
     Route: 048
  2. ZYRTEC [Suspect]
     Indication: ASTHMA
     Dosage: 10 MG
     Route: 048

REACTIONS (6)
  - SCRATCH [None]
  - PRURITUS [None]
  - URTICARIA [None]
  - DRUG DOSE OMISSION [None]
  - WITHDRAWAL SYNDROME [None]
  - ACTIVITIES OF DAILY LIVING IMPAIRED [None]
